FAERS Safety Report 4667207-X (Version None)
Quarter: 2005Q2

REPORT INFORMATION
  Report Type: 
  Country: None (occurrence: None)
  Receive Date: 20050520
  Receipt Date: 20040719
  Transmission Date: 20051028
  Serious: No
  Sender: FDA-Public Use
  Company Number: US-BRISTOL-MYERS SQUIBB COMPANY-12644514

PATIENT
  Age: 77 Year
  Sex: Female
  Weight: 63 kg

DRUGS (1)
  1. SINEMET [Suspect]
     Indication: PARKINSON'S DISEASE
     Dosage: NUMBER OF DOSAGES:  ^POSSIBLY^ 1.5 TABLETS, ^POSSIBLY^ TWICE PER DAY.
     Route: 048

REACTIONS (3)
  - DIFFICULTY IN WALKING [None]
  - DISORIENTATION [None]
  - DYSSTASIA [None]
